FAERS Safety Report 9445834 (Version 1)
Quarter: 2013Q3

REPORT INFORMATION
  Report Type: Spontaneous
  Country: US (occurrence: US)
  Receive Date: 20130807
  Receipt Date: 20130807
  Transmission Date: 20140515
  Serious: Yes (Other)
  Sender: FDA-Public Use
  Company Number: US-BAYER-2013-095181

PATIENT
  Age: 77 Year
  Sex: Male
  Weight: 65.76 kg

DRUGS (2)
  1. PHILLIPS^ MILK OF MAGNESIA [Suspect]
     Indication: CONSTIPATION
     Dosage: 4 TBSP, PRN
     Route: 048
     Dates: start: 201307, end: 20130804
  2. METFORMIN [Concomitant]

REACTIONS (1)
  - Blood glucose increased [Not Recovered/Not Resolved]
